FAERS Safety Report 21746995 (Version 2)
Quarter: 2023Q1

REPORT INFORMATION
  Report Type: Spontaneous
  Country: US (occurrence: US)
  Receive Date: 20221219
  Receipt Date: 20230102
  Transmission Date: 20230418
  Serious: No
  Sender: FDA-Public Use
  Company Number: US-SANOFI-01405039

PATIENT
  Age: 54 Year
  Sex: Female

DRUGS (3)
  1. LANTUS [Suspect]
     Active Substance: INSULIN GLARGINE
     Indication: Type 2 diabetes mellitus
     Dosage: 10 IU, QD
     Dates: start: 202207
  2. LANTUS [Suspect]
     Active Substance: INSULIN GLARGINE
     Dosage: 24 U, QD
     Dates: start: 2022
  3. JARDIANCE [Concomitant]
     Active Substance: EMPAGLIFLOZIN
     Dosage: UNK

REACTIONS (7)
  - Tremor [Not Recovered/Not Resolved]
  - Stress [Not Recovered/Not Resolved]
  - Blood glucose increased [Unknown]
  - Injection site pain [Not Recovered/Not Resolved]
  - Incorrect dose administered [Unknown]
  - Device issue [Unknown]
  - Product dose omission issue [Unknown]

NARRATIVE: CASE EVENT DATE: 20220101
